FAERS Safety Report 6683000-0 (Version None)
Quarter: 2010Q2

REPORT INFORMATION
  Report Type: 
  Country: None (occurrence: None)
  Receive Date: 20100413
  Receipt Date: 20100330
  Transmission Date: 20101027
  Serious: Yes (Life-Threatening, Hospitalization)
  Sender: FDA-Public Use
  Company Number: DSM-2010-00534

PATIENT
  Age: 62 Year
  Sex: Male

DRUGS (9)
  1. OLMESARTAN MEDOXOMIL [Suspect]
     Indication: HYPERTENSION
     Dosage: 40 MG (40 MG, 1 IN 1 D), ORAL
     Route: 048
     Dates: start: 20080101, end: 20100111
  2. IBUPROFEN [Suspect]
     Indication: PAIN
     Dosage: 600 MG, AS NEEDED, ORAL
     Route: 048
     Dates: start: 20090701, end: 20100111
  3. CERTICAN [Suspect]
     Indication: RENAL CANCER
     Route: 048
     Dates: start: 20091117, end: 20100108
  4. CENTYL (BENDROFLUMETHIAZICE) [Concomitant]
  5. PANTOPRAZOLE SODIUM [Concomitant]
  6. OXYCONTIN [Concomitant]
  7. OXYCODONE HCL [Concomitant]
  8. ALOPAM (OXAZEPAM) [Concomitant]
  9. IMOCLONE (ZOPICLONE) [Concomitant]

REACTIONS (5)
  - BLOOD UREA DECREASED [None]
  - DRUG INTERACTION [None]
  - HYPERKALAEMIA [None]
  - METABOLIC ACIDOSIS [None]
  - RENAL FAILURE [None]
